FAERS Safety Report 9262544 (Version 1)
Quarter: 2013Q2

REPORT INFORMATION
  Report Type: Spontaneous
  Country: US (occurrence: US)
  Receive Date: 20130430
  Receipt Date: 20130430
  Transmission Date: 20140414
  Serious: Yes (Hospitalization)
  Sender: FDA-Public Use
  Company Number: US-BAYER-2013-051158

PATIENT
  Age: 25 Year
  Sex: Female

DRUGS (5)
  1. YASMIN [Suspect]
     Indication: CONTRACEPTION
  2. TRAMADOL [Concomitant]
     Indication: PAIN IN EXTREMITY
  3. VICODIN [Concomitant]
  4. LEVBID [Concomitant]
  5. NUVARING [Concomitant]

REACTIONS (3)
  - Pulmonary embolism [None]
  - Pelvic venous thrombosis [None]
  - Deep vein thrombosis [None]
